FAERS Safety Report 16366469 (Version 1)
Quarter: 2019Q2

REPORT INFORMATION
  Report Type: Spontaneous
  Country: GB (occurrence: GB)
  Receive Date: 20190529
  Receipt Date: 20190529
  Transmission Date: 20190711
  Serious: Yes (Other)
  Sender: FDA-Public Use
  Company Number: GB-TEVA-2019-GB-1055344

PATIENT
  Age: 69 Year
  Sex: Female
  Weight: 79 kg

DRUGS (11)
  1. FEXOFENADINE [Concomitant]
     Active Substance: FEXOFENADINE\FEXOFENADINE HYDROCHLORIDE
     Dosage: 1 DOSAGE FORMS DAILY;
     Route: 065
     Dates: start: 20180919
  2. BECLOMETASONE [Concomitant]
     Active Substance: BECLOMETHASONE DIPROPIONATE
     Dosage: 4 DOSAGE FORMS DAILY; PUFFS INTO EACH NOSTRIL.
     Route: 045
     Dates: start: 20180530
  3. AMLODIPINE [Concomitant]
     Active Substance: AMLODIPINE BESYLATE
     Dosage: 1 DOSAGE FORMS DAILY; NOT TOLERATE HIGHER DOSE.
     Route: 065
     Dates: start: 20180530
  4. LANSOPRAZOLE. [Concomitant]
     Active Substance: LANSOPRAZOLE
     Dosage: MAXIMUM ONCE A DAY.
     Route: 065
     Dates: start: 20180530
  5. TAMOXIFEN [Concomitant]
     Active Substance: TAMOXIFEN
     Dosage: 1 DOSAGE FORMS DAILY;
     Route: 065
     Dates: start: 20180530
  6. HYLO-FORTE [Concomitant]
     Active Substance: HYALURONATE SODIUM
     Dosage: TO BOTH EYES.
     Route: 050
     Dates: start: 20180530
  7. LOSARTAN. [Suspect]
     Active Substance: LOSARTAN
     Dosage: 25 MILLIGRAM DAILY;
     Route: 065
     Dates: start: 20180530
  8. FLUCLOXACILLIN [Concomitant]
     Active Substance: FLUCLOXACILLIN
     Dosage: 4 DOSAGE FORMS DAILY;
     Route: 065
     Dates: start: 20180816, end: 20180823
  9. CLENIL MODULITE [Concomitant]
     Active Substance: BECLOMETHASONE DIPROPIONATE
     Dosage: 4 DOSAGE FORMS DAILY;
     Route: 055
     Dates: start: 20180718, end: 20180906
  10. QUININE [Concomitant]
     Active Substance: QUININE
     Indication: MUSCLE SPASMS
     Dosage: 1 DOSAGE FORMS DAILY; AT NIGHT.
     Route: 065
     Dates: start: 20180625
  11. CLOBETASONE BUTYRATE [Concomitant]
     Active Substance: CLOBETASONE BUTYRATE
     Dosage: 2 DOSAGE FORMS DAILY; APPLY
     Route: 065
     Dates: start: 20180530

REACTIONS (3)
  - Skin reaction [Unknown]
  - Urticaria [Recovered/Resolved]
  - Pruritus [Unknown]

NARRATIVE: CASE EVENT DATE: 20181017
